FAERS Safety Report 8351017-6 (Version None)
Quarter: 2012Q2

REPORT INFORMATION
  Report Type: 
  Country: None (occurrence: None)
  Receive Date: 20120510
  Receipt Date: 20120504
  Transmission Date: 20120825
  Serious: Yes (Hospitalization)
  Sender: FDA-Public Use
  Company Number: US-B.I. PHARMACEUTICALS,INC./RIDGEFIELD-2011-BP-22711BP

PATIENT
  Sex: Female

DRUGS (9)
  1. FUROSEMIDE [Concomitant]
     Indication: HYDROTHERAPY
     Route: 048
  2. VENLAFAXINE [Concomitant]
     Indication: ANXIETY
     Route: 048
  3. SIMVASTATIN [Concomitant]
     Indication: BLOOD CHOLESTEROL ABNORMAL
     Route: 048
  4. SPIRONOLACTONE [Concomitant]
     Indication: HYPERTENSION
     Route: 048
  5. ADVAIR DISKUS 100/50 [Concomitant]
     Indication: CHRONIC OBSTRUCTIVE PULMONARY DISEASE
     Route: 048
  6. PRADAXA [Suspect]
     Indication: ATRIAL FIBRILLATION
     Dosage: 300 MG
     Route: 048
     Dates: start: 20110501, end: 20120405
  7. CARVEDILOL [Concomitant]
     Indication: CARDIAC DISORDER
     Route: 048
  8. FEMARA [Concomitant]
     Indication: BREAST CANCER
     Route: 048
     Dates: start: 20010101
  9. LEVOTHYROXINE SODIUM [Concomitant]
     Route: 048

REACTIONS (4)
  - SYNCOPE [None]
  - FALL [None]
  - CONTUSION [None]
  - HAEMATURIA [None]
